FAERS Safety Report 7491541-1 (Version None)
Quarter: 2011Q2

REPORT INFORMATION
  Report Type: 
  Country: None (occurrence: None)
  Receive Date: 20110519
  Receipt Date: 20110506
  Transmission Date: 20111010
  Serious: Yes (Hospitalization)
  Sender: FDA-Public Use
  Company Number: US-ELI_LILLY_AND_COMPANY-US201105002605

PATIENT
  Age: 6 Year
  Sex: Male
  Weight: 23.5 kg

DRUGS (2)
  1. STRATTERA [Suspect]
     Dosage: 25 MG, QD
  2. TYLENOL                                 /SCH/ [Concomitant]
     Dosage: UNK

REACTIONS (1)
  - HOSPITALISATION [None]
